FAERS Safety Report 7439936-6 (Version None)
Quarter: 2011Q2

REPORT INFORMATION
  Report Type: 
  Country: None (occurrence: None)
  Receive Date: 20110427
  Receipt Date: 20110414
  Transmission Date: 20111010
  Serious: Yes (Disabling)
  Sender: FDA-Public Use
  Company Number: GB-WATSON-2011-03629

PATIENT
  Age: 60 Year
  Sex: Male
  Weight: 73.5 kg

DRUGS (3)
  1. PRAVASTATIN SODIUM [Suspect]
     Indication: BLOOD CHOLESTEROL INCREASED
     Dosage: 40 MG, DAILY
     Route: 048
     Dates: start: 20100804, end: 20110206
  2. RAMIPRIL [Concomitant]
     Dosage: 1.25 MG, DAILY
     Route: 048
     Dates: start: 20100801, end: 20101221
  3. RAMIPRIL [Concomitant]
     Indication: HYPERTENSION
     Dosage: 2.5 MG, DAILY
     Route: 048
     Dates: start: 20100801, end: 20110217

REACTIONS (4)
  - WEIGHT DECREASED [None]
  - FATIGUE [None]
  - ASTHENIA [None]
  - MUSCLE ATROPHY [None]
